FAERS Safety Report 9522439 (Version 1)
Quarter: 2013Q1

REPORT INFORMATION
  Report Type: Spontaneous
  Country: US (occurrence: None)
  Receive Date: 20130305
  Receipt Date: 20130305
  Transmission Date: 20140127
  Serious: Yes (Hospitalization, Other)
  Sender: FDA-Public Use
  Company Number: 163-21880-12070672

PATIENT
  Age: 80 Year
  Sex: Female

DRUGS (35)
  1. REVLIMID ( LENALIDOMIDE) (10 MILLIGRAM, CAPSULES) [Suspect]
     Indication: PLASMA CELL MYELOMA
     Route: 048
     Dates: start: 20120621, end: 20120716
  2. ALLOPURINOL (ALLOPURINOL) (UNKNOWN) [Concomitant]
  3. ONDANSETRON HCL (ONDANSETRON HYDROCHLORIDE) (TABLETS) [Concomitant]
  4. HYDROXYZINE HCL (HYDROXYZINE HYDROCHLORIDE) (UNKNOWN0 [Concomitant]
  5. MAGENESIUM (MAGNESIUM) (UNKNOWN) [Concomitant]
  6. MAGNESIUM OXIDE (MAGENESIUM OXIDE) (TABLETS) [Concomitant]
  7. POTASSIUM CHLORIDE (POTASSIUM CHLORIDE) (UNKNOWN) [Concomitant]
  8. DITROPAN (OXYBUTYNIN) (UNKNOWN) [Concomitant]
  9. NYSTATIN (NYSTANTIN) (SUSPENSION) [Concomitant]
  10. LORAZEPAM (LORAZEPAM) (TABLETS0 [Concomitant]
  11. ZOFRAN (ONDANSETRON HYDROCHLORIDE) (UNKNOWN) [Concomitant]
  12. TRAMADOL HYDROCHLORIDE (TRAMADOL HYDROCHLORIDE) (TABLETS0 [Concomitant]
  13. ULTRACET (ULTRACET) (UNKNOWN) [Concomitant]
  14. DILAUDID (HYDROMORPHONE HYDROCHLORIDE) (TABLETS) [Concomitant]
  15. DECADRON (DEXAMTHASONE) (UNKNOWN) [Concomitant]
  16. TYLENOL (PARACETAMOL) (UNKNOWN) [Concomitant]
  17. COLACE (DOCUSATE SODIUM) (UNKNOWN) [Concomitant]
  18. PRILOSEC (OMEPRAZOLE) (CAPSULES) [Concomitant]
  19. MIRALAX (MACROGOL) (UNKNOWN) [Concomitant]
  20. PLAQUENIL (HYDROXYCHOLOROQUINE PHOSPHATE) (UNKNOWN) [Concomitant]
  21. SINGULAIR [Concomitant]
  22. ZOCOR (SIMVASTATIN) (UNKNOWN) [Concomitant]
  23. OXYBUTYNIN CHLORIDE (OXYBUTYNIN HYDROCHLORIDE) (TABLETS) [Concomitant]
  24. HYDROXYCHLORIDE SULFATE (HYDROXYCHLOROQUINE SULFATE) (TABLETS) [Concomitant]
  25. SIMVASTATIN [Concomitant]
  26. HYDRALAZINE HCL (HYDRALAZINE HYDROCHLORIDE) (TABLETS)? [Concomitant]
  27. OYSTER SHELL CALCIUM (CALCIUM D3 ^STADA^) (TABLETS) [Concomitant]
  28. LEVAQUIN (LEVOFLOXACIN) (TABLETS) [Concomitant]
  29. UROGESIC-BLUE (PHENAZOPYRIDINE) (TABLETS) [Concomitant]
  30. DIPHENHYDRAMINE HCL(DIPHENHYDRAMINE HYDROCHLORIDE) (CACHET) [Concomitant]
  31. POLYETHYLENE GLYCOL (MACROGOL) (UNKNOWN) [Concomitant]
  32. SENNA (SENNA) (TABLETS) [Concomitant]
  33. CYCLOBENZAPRINE (CYCLOBENZAPRINE) (TABLETS) [Concomitant]
  34. LOPERAMIDE HCL (LOPERAMIDE HYDROCHLORIDE) (CAPSULES) [Concomitant]
  35. LOVENOX (HEPARIN-FRACTION, SODIUM SALT) (UNKNOWN) [Concomitant]

REACTIONS (7)
  - Staphylococcal infection [None]
  - Escherichia urinary tract infection [None]
  - Anaemia [None]
  - Renal failure acute [None]
  - Fatigue [None]
  - Asthenia [None]
  - Decreased appetite [None]
